FAERS Safety Report 9094047 (Version 1)
Quarter: 2013Q1

REPORT INFORMATION
  Report Type: Spontaneous
  Country: US (occurrence: None)
  Receive Date: 20130122
  Receipt Date: 20130122
  Transmission Date: 20140127
  Serious: Yes (Death)
  Sender: FDA-Public Use
  Company Number: DSA_61961_2013

PATIENT
  Age: 54 Year
  Sex: Male

DRUGS (8)
  1. DILTIAZEM HYDROCHLORIDE [Suspect]
     Indication: PRODUCT USED FOR UNKNOWN INDICATION
     Route: 048
     Dates: end: 2011
  2. LORAZEPAM [Suspect]
     Route: 048
     Dates: end: 2011
  3. MIDAZOLAM [Suspect]
     Route: 048
     Dates: end: 2011
  4. ACETAMINOPHEN [Suspect]
     Route: 048
     Dates: end: 2011
  5. HYDROMORPHONE [Suspect]
     Route: 048
     Dates: end: 2011
  6. MEPROBAMATE [Suspect]
     Route: 048
     Dates: end: 2011
  7. HYDROCODONE [Suspect]
     Route: 048
     Dates: end: 2011
  8. CARISOPRODOL [Suspect]
     Route: 048
     Dates: end: 2011

REACTIONS (2)
  - Intentional drug misuse [None]
  - Toxicity to various agents [None]
